FAERS Safety Report 6297662-3 (Version None)
Quarter: 2009Q3

REPORT INFORMATION
  Report Type: 
  Country: None (occurrence: None)
  Receive Date: 20090805
  Receipt Date: 20090729
  Transmission Date: 20100115
  Serious: Yes (Other)
  Sender: FDA-Public Use
  Company Number: US-AMGEN-US357993

PATIENT
  Sex: Male

DRUGS (2)
  1. NPLATE [Suspect]
     Indication: IDIOPATHIC THROMBOCYTOPENIC PURPURA
     Route: 065
     Dates: start: 20081121, end: 20081219
  2. CORTICOSTEROIDS [Concomitant]
     Route: 065
     Dates: start: 20081108

REACTIONS (1)
  - BONE MARROW DISORDER [None]
